FAERS Safety Report 9227384 (Version 1)
Quarter: 2013Q2

REPORT INFORMATION
  Report Type: Spontaneous
  Country: IT (occurrence: None)
  Receive Date: 20130410
  Receipt Date: 20130410
  Transmission Date: 20140414
  Serious: Yes (Hospitalization)
  Sender: FDA-Public Use
  Company Number: SYM-2013-02430

PATIENT
  Age: 33 Year
  Sex: Female

DRUGS (3)
  1. FLUOROURACIL [Suspect]
     Indication: COLON CANCER METASTATIC
  2. IRINOTECAN [Suspect]
     Indication: COLON CANCER METASTATIC
  3. FOLINIC ACID [Suspect]
     Indication: COLON CANCER METASTATIC
     Dosage: FEW WEEKS

REACTIONS (7)
  - Constipation [None]
  - Nausea [None]
  - Maternal exposure during pregnancy [None]
  - Caesarean section [None]
  - Malignant neoplasm progression [None]
  - Colon cancer metastatic [None]
  - Colectomy [None]
